FAERS Safety Report 5359968-1 (Version None)
Quarter: 2007Q2

REPORT INFORMATION
  Report Type: 
  Country: None (occurrence: None)
  Receive Date: 20070617
  Receipt Date: 20070605
  Transmission Date: 20071010
  Serious: Yes (Death, Hospitalization)
  Sender: FDA-Public Use
  Company Number: CA-JNJFOC-20070601516

PATIENT
  Age: 42 Year
  Sex: Male

DRUGS (1)
  1. REMICADE [Suspect]
     Indication: COLITIS ULCERATIVE
     Route: 042

REACTIONS (4)
  - ASPERGILLOSIS [None]
  - GASTROINTESTINAL PERFORATION [None]
  - LEUKOPENIA [None]
  - MEGACOLON [None]
